FAERS Safety Report 6356256-1 (Version None)
Quarter: 2009Q3

REPORT INFORMATION
  Report Type: 
  Country: None (occurrence: None)
  Receive Date: 20090915
  Receipt Date: 20090902
  Transmission Date: 20100115
  Serious: Yes (Other)
  Sender: FDA-Public Use
  Company Number: US-TYCO HEALTHCARE/MALLINCKRODT-T200901644

PATIENT
  Age: 53 Year
  Sex: Female

DRUGS (7)
  1. OCTREOSCAN [Suspect]
     Indication: SOMATOSTATIN RECEPTOR SCAN
     Dosage: 6 MCI, SINGLE
     Route: 042
     Dates: start: 19970101, end: 19970101
  2. OCTREOSCAN [Suspect]
     Indication: SOMATOSTATIN ANALOGUE THERAPY
     Dosage: UNK, SINGLE
     Route: 042
     Dates: start: 19970101, end: 19970101
  3. OCTREOSCAN [Suspect]
     Dosage: UNK, SINGLE
     Route: 042
     Dates: start: 19970101, end: 19970101
  4. OCTREOSCAN [Suspect]
     Dosage: UNK, SINGLE
     Route: 042
     Dates: start: 19970101, end: 19970101
  5. INDIUM (111 IN) [Suspect]
     Indication: SOMATOSTATIN ANALOGUE THERAPY
     Dosage: 180 MCI, SINGLE
     Route: 042
     Dates: start: 19970101, end: 19970101
  6. INDIUM (111 IN) [Suspect]
     Dosage: 180 MCI, SINGLE
     Route: 042
     Dates: start: 19970101, end: 19970101
  7. INDIUM (111 IN) [Suspect]
     Dosage: 180 MCI, SINGLE
     Route: 042
     Dates: start: 19970101, end: 19970101

REACTIONS (3)
  - HAEMATOTOXICITY [None]
  - INTENTIONAL DRUG MISUSE [None]
  - PLATELET TOXICITY [None]
